FAERS Safety Report 4801683-4 (Version None)
Quarter: 2005Q4

REPORT INFORMATION
  Report Type: 
  Country: None (occurrence: None)
  Receive Date: 20051018
  Receipt Date: 20051012
  Transmission Date: 20060501
  Serious: Yes (Other)
  Sender: FDA-Public Use
  Company Number: US-GLAXOSMITHKLINE-A0578019A

PATIENT
  Age: 50 Year
  Sex: Male

DRUGS (23)
  1. AVANDIA [Suspect]
     Dosage: 8MG PER DAY
     Route: 048
     Dates: start: 19990101, end: 20051001
  2. METFORMIN HCL [Suspect]
     Dosage: 1000MG TWICE PER DAY
  3. AVANDAMET [Suspect]
  4. PLAVIX [Concomitant]
  5. DEMADEX [Concomitant]
  6. PREVACID [Concomitant]
  7. METOLAZONE [Concomitant]
  8. TOPROL-XL [Concomitant]
  9. GLIPIZIDE [Concomitant]
  10. IMDUR [Concomitant]
  11. STARLIX [Concomitant]
  12. TRENTAL [Concomitant]
  13. MOBIC [Concomitant]
  14. ALTACE [Concomitant]
  15. ASPIRIN [Concomitant]
  16. FOLIC ACID [Concomitant]
  17. POTASSIUM [Concomitant]
  18. HYDROCODONE [Concomitant]
  19. ENDOCET [Concomitant]
  20. LIPITOR [Concomitant]
  21. LANTUS [Concomitant]
  22. BETHANECHOL [Concomitant]
  23. AVANDAMET [Concomitant]

REACTIONS (3)
  - BLOOD GLUCOSE INCREASED [None]
  - DRUG INEFFECTIVE [None]
  - VISUAL ACUITY REDUCED [None]
